FAERS Safety Report 9557351 (Version 1)
Quarter: 2013Q3

REPORT INFORMATION
  Report Type: Spontaneous
  Country: US (occurrence: None)
  Receive Date: 20130726
  Receipt Date: 20130726
  Transmission Date: 20140515
  Serious: Yes (Death, Hospitalization)
  Sender: FDA-Public Use
  Company Number: UTC-022778

PATIENT
  Age: 57 Year
  Sex: Male
  Weight: 67.73 kg

DRUGS (2)
  1. REMODULIN [Suspect]
     Indication: PULMONARY ARTERIAL HYPERTENSION
     Dosage: 0.11 UG/KG 1 IN 1 MIN
     Route: 041
     Dates: start: 20101229
  2. REVATIO [Suspect]

REACTIONS (6)
  - Septic shock [None]
  - Lymphoma [None]
  - Klebsiella bacteraemia [None]
  - Pain [None]
  - Pain in extremity [None]
  - Liver disorder [None]
